FAERS Safety Report 21388844 (Version 2)
Quarter: 2022Q4

REPORT INFORMATION
  Report Type: Spontaneous
  Country: PT (occurrence: PT)
  Receive Date: 20220929
  Receipt Date: 20221006
  Transmission Date: 20230113
  Serious: Yes (Life-Threatening, Hospitalization, Other)
  Sender: FDA-Public Use
  Company Number: PT-BoehringerIngelheim-2022-BI-194566

PATIENT
  Age: 89 Year
  Sex: Female

DRUGS (2)
  1. JARDIANCE [Suspect]
     Active Substance: EMPAGLIFLOZIN
     Indication: Diabetes mellitus
     Dates: start: 202203
  2. INSULIN GLARGINE [Concomitant]
     Active Substance: INSULIN GLARGINE
     Indication: Product used for unknown indication

REACTIONS (4)
  - Suicide attempt [Unknown]
  - Intentional product misuse [Unknown]
  - Hypoglycaemia [Recovered/Resolved]
  - Disorientation [Unknown]

NARRATIVE: CASE EVENT DATE: 20220924
